FAERS Safety Report 8600016-5 (Version None)
Quarter: 2012Q3

REPORT INFORMATION
  Report Type: 
  Country: None (occurrence: None)
  Receive Date: 20120816
  Receipt Date: 20120730
  Transmission Date: 20120928
  Serious: Yes (Other)
  Sender: FDA-Public Use
  Company Number: CHPA2012US018112

PATIENT
  Age: 58 Year
  Sex: Female

DRUGS (5)
  1. EXCEDRIN PM TABLETS [Suspect]
     Indication: MIGRAINE
     Dosage: 3 OR 4 DF AT ONE TIME, ONCE
     Route: 048
     Dates: start: 20120629, end: 20120629
  2. OXYCODONE HCL [Concomitant]
     Dosage: UNK, UNK
     Route: 048
     Dates: start: 20120601
  3. EXCEDRIN PM TABLETS [Suspect]
     Dosage: UNK, QHS
     Route: 048
  4. MELATONIN [Concomitant]
     Indication: INSOMNIA
     Dosage: 20 MG, QD
     Route: 048
  5. EXCEDRIN (MIGRAINE) [Suspect]
     Dosage: UNK, UNK
     Route: 048

REACTIONS (1)
  - DYSPNOEA [None]
